FAERS Safety Report 18509863 (Version 3)
Quarter: 2020Q4

REPORT INFORMATION
  Report Type: Spontaneous
  Country: ES (occurrence: ES)
  Receive Date: 20201117
  Receipt Date: 20201213
  Transmission Date: 20210114
  Serious: Yes (Death, Hospitalization, Other)
  Sender: FDA-Public Use
  Company Number: ES-ROCHE-2714102

PATIENT
  Age: 67 Year
  Sex: Male

DRUGS (5)
  1. VENETOCLAX. [Suspect]
     Active Substance: VENETOCLAX
     Dosage: COMPASSIONATE USE
     Route: 065
     Dates: start: 20180813
  2. ATEZOLIZUMAB. [Suspect]
     Active Substance: ATEZOLIZUMAB
     Indication: MANTLE CELL LYMPHOMA
     Route: 065
     Dates: start: 20171214
  3. OBINUTUZUMAB. [Suspect]
     Active Substance: OBINUTUZUMAB
     Indication: MANTLE CELL LYMPHOMA
     Route: 065
     Dates: start: 20171214
  4. IMBRUVICA [Suspect]
     Active Substance: IBRUTINIB
     Indication: MANTLE CELL LYMPHOMA
     Route: 048
     Dates: start: 20170829
  5. VENETOCLAX. [Suspect]
     Active Substance: VENETOCLAX
     Indication: MANTLE CELL LYMPHOMA
     Dosage: COMPASSIONATE USE
     Route: 065

REACTIONS (10)
  - Melaena [Fatal]
  - Mantle cell lymphoma [Fatal]
  - Respiratory tract infection [Unknown]
  - Diarrhoea [Unknown]
  - Abdominal mass [Fatal]
  - Bacterial infection [Fatal]
  - Cytokine release syndrome [Unknown]
  - Thrombocytopenia [Unknown]
  - Neutropenia [Unknown]
  - Asthenia [Unknown]

NARRATIVE: CASE EVENT DATE: 20190929
